FAERS Safety Report 10705741 (Version 1)
Quarter: 2015Q1

REPORT INFORMATION
  Report Type: Report from Study
  Country: US (occurrence: US)
  Receive Date: 20150112
  Receipt Date: 20150112
  Transmission Date: 20150721
  Serious: Yes (Other)
  Sender: FDA-Public Use
  Company Number: US-AMGEN INC.-USASL2015001076

PATIENT
  Age: 59 Year
  Sex: Female

DRUGS (2)
  1. ENBREL [Suspect]
     Active Substance: ETANERCEPT
     Indication: RHEUMATOID ARTHRITIS
     Dosage: 50 MG, QWK
     Route: 065
     Dates: start: 20140923
  2. METHOTREXATE [Concomitant]
     Active Substance: METHOTREXATE
     Dosage: UNK UNK,5 TABLETS QWK
     Dates: start: 201405

REACTIONS (4)
  - Sinusitis [Recovered/Resolved]
  - Rash [Recovered/Resolved]
  - Rheumatoid arthritis [Recovering/Resolving]
  - Dry skin [Recovered/Resolved]

NARRATIVE: CASE EVENT DATE: 201409
